FAERS Safety Report 11722774 (Version 1)
Quarter: 2015Q4

REPORT INFORMATION
  Report Type: Spontaneous
  Country: JP (occurrence: JP)
  Receive Date: 20151111
  Receipt Date: 20151111
  Transmission Date: 20160304
  Serious: Yes (Other)
  Sender: FDA-Public Use
  Company Number: PHHY2015JP144619

PATIENT
  Age: 84 Year
  Sex: Male

DRUGS (8)
  1. DACARBAZINE. [Concomitant]
     Active Substance: DACARBAZINE
     Indication: MALIGNANT MELANOMA
     Route: 065
  2. NIMUSTINE [Concomitant]
     Active Substance: NIMUSTINE
     Indication: MALIGNANT MELANOMA
     Route: 065
  3. NIVOLUMAB [Interacting]
     Active Substance: NIVOLUMAB
     Indication: METASTASIS
     Route: 065
  4. TELMISARTAN. [Concomitant]
     Active Substance: TELMISARTAN
     Indication: PRODUCT USED FOR UNKNOWN INDICATION
     Route: 065
  5. DILTIAZEM [Concomitant]
     Active Substance: DILTIAZEM
     Indication: PRODUCT USED FOR UNKNOWN INDICATION
     Route: 065
  6. ATORVASTATIN [Suspect]
     Active Substance: ATORVASTATIN
     Indication: HYPERLIPIDAEMIA
     Route: 065
  7. VINCRISTINE [Concomitant]
     Active Substance: VINCRISTINE
     Indication: MALIGNANT MELANOMA
     Route: 065
  8. INTERFERON BETA NOS [Concomitant]
     Active Substance: INTERFERON BETA
     Indication: MALIGNANT MELANOMA
     Route: 065

REACTIONS (2)
  - Drug interaction [Unknown]
  - Myositis [Recovered/Resolved]
